FAERS Safety Report 13908796 (Version 18)
Quarter: 2021Q2

REPORT INFORMATION
  Report Type: Report from Study
  Country: CA (occurrence: CA)
  Receive Date: 20170827
  Receipt Date: 20210616
  Transmission Date: 20210716
  Serious: Yes (Other)
  Sender: FDA-Public Use
  Company Number: PHHY2012CA074290

PATIENT
  Age: 57 Year
  Sex: Female

DRUGS (16)
  1. SANDOSTATIN LAR DEPOT [Suspect]
     Active Substance: OCTREOTIDE ACETATE
     Dosage: 20 MG, QMO (ONCE A MONTH)
     Route: 030
     Dates: start: 2013
  2. AFINITOR [Suspect]
     Active Substance: EVEROLIMUS
     Indication: PRODUCT USED FOR UNKNOWN INDICATION
     Dosage: 10 MG, QD
     Route: 048
     Dates: start: 201708
  3. SANDOSTATIN LAR DEPOT [Suspect]
     Active Substance: OCTREOTIDE ACETATE
     Indication: OVARIAN CANCER
     Dosage: 20 MG, QMO
     Route: 030
     Dates: start: 20120822
  4. SANDOSTATIN LAR DEPOT [Suspect]
     Active Substance: OCTREOTIDE ACETATE
     Dosage: 40 MG, QMO
     Route: 030
     Dates: start: 20151102, end: 20170628
  5. NIFEDIPINE. [Concomitant]
     Active Substance: NIFEDIPINE
     Indication: PRODUCT USED FOR UNKNOWN INDICATION
     Dosage: UNK
     Route: 065
  6. SANDOSTATIN LAR DEPOT [Suspect]
     Active Substance: OCTREOTIDE ACETATE
     Dosage: 40 MG, QMO (ONCE A MONTH)
     Route: 030
     Dates: start: 20130114
  7. SANDOSTATIN LAR DEPOT [Suspect]
     Active Substance: OCTREOTIDE ACETATE
     Dosage: 30 MG, QMO (EVERY 4 WEEKS)
     Route: 030
     Dates: start: 20141229
  8. SANDOSTATIN LAR DEPOT [Suspect]
     Active Substance: OCTREOTIDE ACETATE
     Dosage: 30 MG, QMO (ONCE A MONTH)
     Route: 030
     Dates: start: 20121119
  9. AMLODIPINE [Concomitant]
     Active Substance: AMLODIPINE BESYLATE
     Indication: PRODUCT USED FOR UNKNOWN INDICATION
     Dosage: 2.5 MG
     Route: 065
     Dates: start: 202105
  10. SANDOSTATIN LAR DEPOT [Suspect]
     Active Substance: OCTREOTIDE ACETATE
     Dosage: 20 MG, QMO (ONCE A MONTH)
     Route: 030
     Dates: start: 20140811
  11. SANDOSTATIN LAR DEPOT [Suspect]
     Active Substance: OCTREOTIDE ACETATE
     Dosage: 40 MG, QMO (EVERY 4 WEEKS)
     Route: 030
     Dates: start: 20151006
  12. JAMP ASA [Concomitant]
     Active Substance: ASPIRIN
     Indication: HYPERTENSIVE HEART DISEASE
     Dosage: 1 DF, QD
     Route: 048
  13. SANDOSTATIN LAR DEPOT [Suspect]
     Active Substance: OCTREOTIDE ACETATE
     Dosage: 50 MG, QMO (EVERY 4 WEEKS)
     Route: 030
     Dates: start: 20120822
  14. SANDOSTATIN LAR DEPOT [Suspect]
     Active Substance: OCTREOTIDE ACETATE
     Dosage: 40 MG, QMO (ONCE A MONTH)
     Route: 030
     Dates: start: 20131018
  15. SANDOSTATIN LAR DEPOT [Suspect]
     Active Substance: OCTREOTIDE ACETATE
     Dosage: 50 MG, QMO (EVERY 4 WEEKS)
     Route: 030
     Dates: start: 20170726
  16. JANUVIA [Concomitant]
     Active Substance: SITAGLIPTIN PHOSPHATE
     Indication: DIABETES MELLITUS
     Dosage: 1 DF, QD
     Route: 048

REACTIONS (53)
  - Proctalgia [Recovered/Resolved]
  - Peripheral swelling [Unknown]
  - Blood pressure decreased [Unknown]
  - Vision blurred [Unknown]
  - Presyncope [Unknown]
  - Musculoskeletal pain [Unknown]
  - Injection site pain [Recovered/Resolved]
  - Constipation [Unknown]
  - Injection site mass [Unknown]
  - Atrial fibrillation [Unknown]
  - Skin discolouration [Recovered/Resolved]
  - Nervousness [Unknown]
  - Abdominal pain upper [Recovered/Resolved]
  - Nausea [Unknown]
  - Balance disorder [Unknown]
  - Cough [Unknown]
  - Blood pressure increased [Unknown]
  - Illness [Unknown]
  - Influenza [Unknown]
  - Oedema peripheral [Unknown]
  - Blood magnesium decreased [Unknown]
  - Product use in unapproved indication [Unknown]
  - Pain in extremity [Unknown]
  - Myalgia [Unknown]
  - Pain [Unknown]
  - Blood creatinine increased [Unknown]
  - Injection site warmth [Recovered/Resolved]
  - Injection site induration [Recovered/Resolved]
  - Body temperature decreased [Unknown]
  - Muscle spasms [Unknown]
  - Chills [Unknown]
  - Chest pain [Unknown]
  - Stress [Unknown]
  - Heart rate decreased [Unknown]
  - Dysphonia [Unknown]
  - Onychoclasis [Unknown]
  - Urine output decreased [Unknown]
  - Erythema [Unknown]
  - Heart rate increased [Unknown]
  - Injection site swelling [Unknown]
  - Injection site bruising [Unknown]
  - Neoplasm malignant [Unknown]
  - Second primary malignancy [Unknown]
  - Flushing [Unknown]
  - Contusion [Recovered/Resolved]
  - Hot flush [Unknown]
  - Body temperature increased [Unknown]
  - Pyrexia [Unknown]
  - Blood potassium decreased [Unknown]
  - Nail disorder [Unknown]
  - Fatigue [Unknown]
  - Abdominal pain [Unknown]
  - Nausea [Recovered/Resolved]

NARRATIVE: CASE EVENT DATE: 20120822
